FAERS Safety Report 5948594-9 (Version None)
Quarter: 2008Q4

REPORT INFORMATION
  Report Type: 
  Country: None (occurrence: None)
  Receive Date: 20081111
  Receipt Date: 20081031
  Transmission Date: 20090506
  Serious: Yes (Other)
  Sender: FDA-Public Use
  Company Number: FR-BAXTER-2008BH010646

PATIENT
  Age: 20 Year
  Sex: Male

DRUGS (22)
  1. HOLOXAN BAXTER [Suspect]
     Indication: RHABDOMYOSARCOMA
     Dosage: DOSE UNIT:UNKNOWN
     Route: 065
     Dates: start: 20080311, end: 20080311
  2. HOLOXAN BAXTER [Suspect]
     Dosage: DOSE UNIT:UNKNOWN
     Route: 065
     Dates: start: 20080401, end: 20080401
  3. HOLOXAN BAXTER [Suspect]
     Dosage: DOSE UNIT:UNKNOWN
     Route: 065
     Dates: start: 20080422, end: 20080422
  4. HOLOXAN BAXTER [Suspect]
     Dosage: DOSE UNIT:UNKNOWN
     Route: 065
     Dates: start: 20080513, end: 20080513
  5. HOLOXAN BAXTER [Suspect]
     Dosage: DOSE UNIT:UNKNOWN
     Route: 042
     Dates: start: 20080603, end: 20080603
  6. HOLOXAN BAXTER [Suspect]
     Route: 042
     Dates: start: 20080624, end: 20080625
  7. HOLOXAN BAXTER [Suspect]
     Dosage: DOSE UNIT:UNKNOWN
     Route: 065
     Dates: start: 20080721, end: 20080721
  8. HOLOXAN BAXTER [Suspect]
     Dosage: DOSE UNIT:UNKNOWN
     Route: 065
     Dates: start: 20080821, end: 20080821
  9. HOLOXAN BAXTER [Suspect]
     Route: 065
     Dates: start: 20080901, end: 20080901
  10. ONCOVIN [Suspect]
     Indication: RHABDOMYOSARCOMA
     Dosage: DOSE UNIT:UNKNOWN
     Route: 065
     Dates: start: 20080311, end: 20080311
  11. ONCOVIN [Suspect]
     Dosage: DOSE UNIT:UNKNOWN
     Route: 042
     Dates: start: 20080401, end: 20080401
  12. ONCOVIN [Suspect]
     Dosage: DOSE UNIT:UNKNOWN
     Route: 042
     Dates: start: 20080422, end: 20080422
  13. ONCOVIN [Suspect]
     Dosage: DOSE UNIT:UNKNOWN
     Route: 042
     Dates: start: 20080513, end: 20080513
  14. ONCOVIN [Suspect]
     Dosage: DOSE UNIT:UNKNOWN
     Route: 042
     Dates: start: 20080603, end: 20080603
  15. ONCOVIN [Suspect]
     Route: 042
     Dates: start: 20080624, end: 20080624
  16. ONCOVIN [Suspect]
     Dosage: DOSE UNIT:UNKNOWN
     Route: 065
     Dates: start: 20080721, end: 20080721
  17. ONCOVIN [Suspect]
     Dosage: DOSE UNIT:UNKNOWN
     Route: 065
     Dates: start: 20080821, end: 20080821
  18. ONCOVIN [Suspect]
     Route: 065
     Dates: start: 20080901, end: 20080901
  19. COSMEGEN [Suspect]
     Indication: RHABDOMYOSARCOMA
     Route: 042
     Dates: start: 20080901, end: 20080901
  20. DACTINOMYCIN [Concomitant]
     Indication: RHABDOMYOSARCOMA
     Dates: start: 20080311, end: 20080901
  21. DOXORUBICIN HCL [Concomitant]
     Indication: RHABDOMYOSARCOMA
     Dates: start: 20080311, end: 20080513
  22. UROMITEXAN [Concomitant]
     Indication: DRUG USE FOR UNKNOWN INDICATION
     Dates: start: 20080624, end: 20080625

REACTIONS (1)
  - EJECTION FRACTION DECREASED [None]
